FAERS Safety Report 6042668-2 (Version None)
Quarter: 2009Q1

REPORT INFORMATION
  Report Type: 
  Country: None (occurrence: None)
  Receive Date: 20090119
  Receipt Date: 20090109
  Transmission Date: 20090719
  Serious: Yes (Other)
  Sender: FDA-Public Use
  Company Number: PHHY2009CA01092

PATIENT
  Sex: Male

DRUGS (1)
  1. EXELON [Suspect]
     Dosage: 6 MG AM, 3 MG PM, 3 MG HS
     Route: 048

REACTIONS (3)
  - CONVULSION [None]
  - PETIT MAL EPILEPSY [None]
  - STATUS EPILEPTICUS [None]
